FAERS Safety Report 5673909-9 (Version None)
Quarter: 2008Q2

REPORT INFORMATION
  Report Type: 
  Country: None (occurrence: None)
  Receive Date: 20080226
  Receipt Date: 20071107
  Transmission Date: 20081010
  Serious: Yes (Other)
  Sender: FDA-Public Use
  Company Number: 530434

PATIENT
  Sex: Female

DRUGS (2)
  1. ISOTRETINOIN [Suspect]
     Indication: DRUG USE FOR UNKNOWN INDICATION
     Dates: start: 20070810, end: 20070911
  2. YASMIN [Suspect]
     Indication: DRUG USE FOR UNKNOWN INDICATION

REACTIONS (4)
  - CONVULSION [None]
  - HYPOAESTHESIA [None]
  - PARAESTHESIA [None]
  - RASH [None]
